FAERS Safety Report 19479987 (Version 2)
Quarter: 2023Q2

REPORT INFORMATION
  Report Type: Spontaneous
  Country: DE (occurrence: DE)
  Receive Date: 20210701
  Receipt Date: 20230406
  Transmission Date: 20230721
  Serious: Yes (Hospitalization)
  Sender: FDA-Public Use
  Company Number: DE-ADRED-06527-01

PATIENT
  Age: 80 Year
  Sex: Female

DRUGS (18)
  1. IBUPROFEN [Suspect]
     Active Substance: IBUPROFEN
     Indication: Product used for unknown indication
     Dosage: 600 MG, SEIT 1D UMGESETZT AUF BEDARFSMEDIKATION BIS ZU 3 STUCK PRO TAG VORHER AM ABEND EINE FESTMEDI
     Route: 048
  2. APIXABAN [Suspect]
     Active Substance: APIXABAN
     Indication: Product used for unknown indication
     Route: 048
  3. CARBIMAZOLE [Concomitant]
     Active Substance: CARBIMAZOLE
     Indication: Product used for unknown indication
     Route: 048
  4. PROPRANOLOL [Concomitant]
     Active Substance: PROPRANOLOL HYDROCHLORIDE
     Indication: Product used for unknown indication
     Route: 048
  5. DIMENHYDRINATE [Concomitant]
     Active Substance: DIMENHYDRINATE
     Indication: Product used for unknown indication
     Dosage: BEI BEDARF HOCHSTENS 3 IN 24H ( IF NECESSARY, A MAXIMUM OF 3 IN 24H)
     Route: 048
  6. FUROSEMIDE [Concomitant]
     Active Substance: FUROSEMIDE
     Indication: Product used for unknown indication
     Route: 048
  7. CANDESARTAN [Concomitant]
     Active Substance: CANDESARTAN
     Indication: Product used for unknown indication
     Route: 048
  8. NALOXONE HYDROCHLORIDE\TILIDINE HYDROCHLORIDE [Concomitant]
     Active Substance: NALOXONE HYDROCHLORIDE\TILIDINE HYDROCHLORIDE
     Indication: Product used for unknown indication
     Dosage: BEI BEDARF 1 IN 24H (IF NEEDED 1 IN 24H)
     Route: 048
  9. LOPERAMIDE [Concomitant]
     Active Substance: LOPERAMIDE
     Indication: Product used for unknown indication
     Dosage: BEI BEDARF HOCHSTENS 2 IN 24H (IF NEEDED MAXIMUM 2 IN 24H)
     Route: 048
  10. PANTOPRAZOLE [Concomitant]
     Active Substance: PANTOPRAZOLE
     Indication: Product used for unknown indication
     Route: 048
  11. DIGITOXIN [Concomitant]
     Active Substance: DIGITOXIN
     Indication: Product used for unknown indication
     Route: 048
  12. LACTULOSE [Concomitant]
     Active Substance: LACTULOSE
     Indication: Product used for unknown indication
     Dosage: 3.335|5 G/ML, 10ML BEI BEDARF IN 24H, SAFT (3.335|5 G/ML, 10ML IF NEEDED IN 24H, JUICE)
     Route: 048
  13. LACTULOSE [Concomitant]
     Active Substance: LACTULOSE
     Dosage: 667 G/L, 10ML BEI BEDARF IN 24H, SAFT (667 G/L 10ML IF NEEDED IN 24H, JUICE)
     Route: 048
  14. Prospan Hustensaft [Concomitant]
     Indication: Product used for unknown indication
     Dosage: BEI BEDARF, SAFT (IF REQUIRED, JUICE)
     Route: 048
  15. Prospan Hustensaft [Concomitant]
     Dosage: 7 MG/ML, BEI BEDARF, SAFT (7 MG/ML, IF REQUIRED, JUICE)
     Route: 048
  16. SPIRONOLACTONE [Concomitant]
     Active Substance: SPIRONOLACTONE
     Indication: Product used for unknown indication
     Dosage: 50 MG, PAUSIERT SEIT 1TAG, TABLETTEN (50 MG, PAUSED SINCE 1DAY, TABLETS)
     Route: 048
  17. ZOLPIDEM [Concomitant]
     Active Substance: ZOLPIDEM TARTRATE
     Indication: Product used for unknown indication
     Dosage: 10 MG, PAUSIERT SEIT 30032021, TABLETTEN (10 MG, PAUSED SINCE 30032021, TABLETS)
     Route: 048
  18. ASPIRIN [Concomitant]
     Active Substance: ASPIRIN
     Indication: Product used for unknown indication
     Dosage: 100 MG, PAUSIERT SEIT 30032021, TABLETTEN (100 MG, PAUSED SINCE 30032021, TABLETS)
     Route: 048

REACTIONS (3)
  - Fall [Unknown]
  - Nausea [Unknown]
  - Medication error [Unknown]
